FAERS Safety Report 9397711 (Version 1)
Quarter: 2013Q3

REPORT INFORMATION
  Report Type: Spontaneous
  Country: US (occurrence: US)
  Receive Date: 20130712
  Receipt Date: 20130712
  Transmission Date: 20140515
  Serious: Yes (Other)
  Sender: FDA-Public Use
  Company Number: US-ASTELLAS-2013US007192

PATIENT
  Age: 6 Year
  Sex: Male

DRUGS (1)
  1. PROTOPIC [Suspect]
     Indication: VITILIGO
     Dosage: 0.1 %, UNKNOWN/D
     Route: 061

REACTIONS (6)
  - Off label use [Unknown]
  - Treatment noncompliance [Unknown]
  - Urine odour abnormal [Unknown]
  - Breath odour [Unknown]
  - Burning sensation [Unknown]
  - Nasal congestion [Unknown]
